FAERS Safety Report 12628799 (Version 2)
Quarter: 2016Q3

REPORT INFORMATION
  Report Type: Spontaneous
  Country: US (occurrence: US)
  Receive Date: 20160808
  Receipt Date: 20160923
  Transmission Date: 20161109
  Serious: Yes (Other)
  Sender: FDA-Public Use
  Company Number: PHEH2016US019558

PATIENT
  Age: 41 Year
  Sex: Male
  Weight: 78.92 kg

DRUGS (5)
  1. VITAMIN D3 [Concomitant]
     Active Substance: CHOLECALCIFEROL
     Indication: PRODUCT USED FOR UNKNOWN INDICATION
     Route: 065
  2. MELATONIN [Concomitant]
     Active Substance: MELATONIN
     Indication: PRODUCT USED FOR UNKNOWN INDICATION
     Route: 065
  3. GILENYA [Suspect]
     Active Substance: FINGOLIMOD HYDROCHLORIDE
     Indication: MULTIPLE SCLEROSIS
     Dosage: UNK UNK, QD
     Route: 048
     Dates: start: 20140110, end: 20150917
  4. CLONAZEPAM. [Concomitant]
     Active Substance: CLONAZEPAM
     Indication: PRODUCT USED FOR UNKNOWN INDICATION
     Route: 065
  5. WELLBUTRIN [Concomitant]
     Active Substance: BUPROPION HYDROCHLORIDE
     Indication: PRODUCT USED FOR UNKNOWN INDICATION
     Route: 065

REACTIONS (14)
  - Globulins decreased [Unknown]
  - Neutrophil count decreased [Unknown]
  - Lymphocyte count decreased [Unknown]
  - Eosinophil count increased [Unknown]
  - Basophil count increased [Unknown]
  - Haematocrit decreased [Unknown]
  - Albumin globulin ratio increased [Unknown]
  - Red blood cell count decreased [Unknown]
  - Monocyte percentage increased [Unknown]
  - Protein total decreased [Unknown]
  - Platelet count decreased [Unknown]
  - Lymphocyte percentage decreased [Unknown]
  - Leukopenia [Recovered/Resolved]
  - Mean platelet volume decreased [Unknown]

NARRATIVE: CASE EVENT DATE: 20150113
